FAERS Safety Report 8305604-1 (Version None)
Quarter: 2012Q2

REPORT INFORMATION
  Report Type: 
  Country: None (occurrence: None)
  Receive Date: 20120423
  Receipt Date: 20120419
  Transmission Date: 20120825
  Serious: Yes (Other)
  Sender: FDA-Public Use
  Company Number: PHFR2012GB001386

PATIENT
  Sex: Male

DRUGS (6)
  1. SERTRALINE HYDROCHLORIDE [Concomitant]
     Indication: DEPRESSED MOOD
     Dosage: 100 MG, DAILY
     Route: 048
  2. GLIMEPIRIDE [Concomitant]
     Indication: DIABETES MELLITUS
     Dosage: 5 MG, UNK
     Route: 048
  3. METFORMIN HCL [Concomitant]
     Indication: DIABETES MELLITUS
     Dosage: 25 MG, DAILY
     Route: 048
  4. AMISULPRIDE [Concomitant]
     Dosage: 1000 MG,
     Dates: start: 20120127
  5. VALPROATE SODIUM [Concomitant]
     Indication: AFFECTIVE DISORDER
     Dosage: 1000 MG, DAILY
     Route: 048
  6. CLOZARIL [Suspect]
     Indication: SCHIZOPHRENIA
     Dosage: 200 MG, QHS
     Route: 048
     Dates: start: 20010701

REACTIONS (7)
  - SPEECH DISORDER [None]
  - LOWER RESPIRATORY TRACT INFECTION [None]
  - C-REACTIVE PROTEIN INCREASED [None]
  - AGITATION [None]
  - CONSTIPATION [None]
  - ANTIPSYCHOTIC DRUG LEVEL ABOVE THERAPEUTIC [None]
  - HALLUCINATION, AUDITORY [None]
